FAERS Safety Report 23348079 (Version 1)
Quarter: 2023Q4

REPORT INFORMATION
  Report Type: Report from Study
  Country: US (occurrence: US)
  Receive Date: 20231228
  Receipt Date: 20231228
  Transmission Date: 20240110
  Serious: Yes (Hospitalization)
  Sender: FDA-Public Use
  Company Number: US-Eisai-EC-2023-155989

PATIENT
  Age: 64 Year
  Sex: Female

DRUGS (6)
  1. LENVIMA [Suspect]
     Active Substance: LENVATINIB
     Indication: Renal cell carcinoma
     Dosage: LENVIMA ON HOLD UNTIL 10/5/2023
     Route: 048
     Dates: start: 20230918, end: 20231002
  2. LENVIMA [Suspect]
     Active Substance: LENVATINIB
     Dosage: PATIENT ONCOLOGIST REQUESTED SHE STAY OFF LENVIMA THIS WEEK AND NEXT WEEK IF SHE HAS POLYPS REMOVED
     Route: 048
     Dates: start: 2023, end: 202311
  3. LENVIMA [Suspect]
     Active Substance: LENVATINIB
     Dosage: LENVIMA HELD FOR 2 WEEKS AFTER GALL BLADDER SURGERY.
     Route: 048
     Dates: start: 20231108
  4. LENVIMA [Suspect]
     Active Substance: LENVATINIB
     Route: 048
     Dates: start: 202311
  5. KEYTRUDA [Concomitant]
     Active Substance: PEMBROLIZUMAB
     Indication: Renal cell carcinoma
     Dosage: DOSE AND FREQUENCY WERE UNKNOWN
     Route: 065
  6. KEYTRUDA [Concomitant]
     Active Substance: PEMBROLIZUMAB
     Dosage: DOSE AND FREQUENCY WERE UNKNOWN
     Route: 065
     Dates: start: 20231102

REACTIONS (1)
  - Cholecystitis [Unknown]

NARRATIVE: CASE EVENT DATE: 20231116
